FAERS Safety Report 17263112 (Version 1)
Quarter: 2020Q1

REPORT INFORMATION
  Report Type: Spontaneous
  Country: US (occurrence: US)
  Receive Date: 20200110
  Receipt Date: 20200110
  Transmission Date: 20200409
  Serious: Yes (Other)
  Sender: FDA-Public Use
  Company Number: None

PATIENT
  Age: 31 Year
  Sex: Female
  Weight: 101.25 kg

DRUGS (3)
  1. PENACILIN [Concomitant]
  2. GABAPENTIN. [Suspect]
     Active Substance: GABAPENTIN
     Indication: NECK INJURY
     Dosage: ?          QUANTITY:60 TABLET(S);?
     Route: 048
     Dates: start: 20190409, end: 20190425
  3. GABAPENTIN. [Suspect]
     Active Substance: GABAPENTIN
     Indication: BACK INJURY
     Dosage: ?          QUANTITY:60 TABLET(S);?
     Route: 048
     Dates: start: 20190409, end: 20190425

REACTIONS (1)
  - Dyspnoea [None]

NARRATIVE: CASE EVENT DATE: 20190415
